FAERS Safety Report 7337717-5 (Version None)
Quarter: 2011Q1

REPORT INFORMATION
  Report Type: 
  Country: None (occurrence: None)
  Receive Date: 20110303
  Receipt Date: 20110303
  Transmission Date: 20110831
  Serious: Yes (Other)
  Sender: FDA-Public Use
  Company Number: None

PATIENT
  Sex: Female
  Weight: 90.85 kg

DRUGS (1)
  1. SULFADIAZINE [Suspect]
     Indication: EYE INFECTION TOXOPLASMAL
     Dosage: 2000 MG Q12 PO HAD BEEN ON TWO WEEKS PTA
     Route: 048
     Dates: start: 20110201, end: 20110203

REACTIONS (1)
  - ABDOMINAL PAIN [None]
